FAERS Safety Report 9484872 (Version 1)
Quarter: 2013Q3

REPORT INFORMATION
  Report Type: Spontaneous
  Country: US (occurrence: US)
  Receive Date: 20130828
  Receipt Date: 20130828
  Transmission Date: 20140515
  Serious: Yes (Hospitalization, Other)
  Sender: FDA-Public Use
  Company Number: US-AMGEN-KDL441552

PATIENT
  Age: 52 Year
  Sex: Male

DRUGS (1)
  1. ENBREL [Suspect]
     Indication: PSORIASIS
     Dosage: 25 MG, 2 TIMES/WK
     Route: 058
     Dates: start: 20070101

REACTIONS (13)
  - Loss of consciousness [Unknown]
  - Confusional state [Unknown]
  - Blood gases abnormal [Unknown]
  - Fluid retention [Unknown]
  - Weight increased [Unknown]
  - Depression [Unknown]
  - Immune system disorder [Unknown]
  - Road traffic accident [Unknown]
  - Malaise [Unknown]
  - Fatigue [Unknown]
  - Nasopharyngitis [Unknown]
  - Psoriasis [Not Recovered/Not Resolved]
  - Injection site pain [Unknown]
